FAERS Safety Report 10897149 (Version 1)
Quarter: 2015Q1

REPORT INFORMATION
  Report Type: Spontaneous
  Country: US (occurrence: None)
  Receive Date: 20150302
  Receipt Date: 20150302
  Transmission Date: 20150721
  Serious: Yes (Other)
  Sender: FDA-Public Use
  Company Number: None

PATIENT
  Age: 59 Year
  Sex: Female
  Weight: 86.18 kg

DRUGS (4)
  1. TYLENOL SEVERE ALLERGY [Concomitant]
  2. METHOCARBAM [Concomitant]
  3. CLINDAMYCIN [Suspect]
     Active Substance: CLINDAMYCIN\CLINDAMYCIN PHOSPHATE
     Indication: INFECTION
     Dosage: 2 PILLS THREE TIMES DAILY
     Route: 048
     Dates: start: 20140314, end: 20140324
  4. CLINDAMYCIN [Suspect]
     Active Substance: CLINDAMYCIN\CLINDAMYCIN PHOSPHATE
     Indication: JAW DISORDER
     Dosage: 2 PILLS THREE TIMES DAILY
     Route: 048
     Dates: start: 20140314, end: 20140324

REACTIONS (4)
  - Muscle spasms [None]
  - Abasia [None]
  - Bedridden [None]
  - Gastrointestinal motility disorder [None]

NARRATIVE: CASE EVENT DATE: 20150218
